FAERS Safety Report 7418212-1 (Version None)
Quarter: 2011Q2

REPORT INFORMATION
  Report Type: 
  Country: None (occurrence: None)
  Receive Date: 20110415
  Receipt Date: 20110411
  Transmission Date: 20111010
  Serious: Yes (Death)
  Sender: FDA-Public Use
  Company Number: JP-CELGENEUS-087-50794-11041475

PATIENT
  Sex: Female

DRUGS (6)
  1. DIFLUCAN [Concomitant]
     Dosage: 100 MILLIGRAM
     Route: 065
  2. BAKTAR [Concomitant]
     Dosage: 1 DF/DAY
     Route: 048
  3. NORVASC [Concomitant]
     Dosage: 2.5 MILLIGRAM
     Route: 048
  4. VIDAZA [Suspect]
     Dosage: 85 MILLIGRAM
     Route: 058
     Dates: start: 20110322, end: 20110328
  5. LYRICA [Concomitant]
     Dosage: 75 MILLIGRAM
     Route: 048
     Dates: start: 20110329, end: 20110330
  6. SIGMART [Concomitant]
     Dosage: 15 MILLIGRAM
     Route: 048

REACTIONS (2)
  - PNEUMONIA [None]
  - HEPATITIS ACUTE [None]
